FAERS Safety Report 7419650-3 (Version None)
Quarter: 2011Q2

REPORT INFORMATION
  Report Type: 
  Country: None (occurrence: None)
  Receive Date: 20110418
  Receipt Date: 20110404
  Transmission Date: 20111010
  Serious: Yes (Other)
  Sender: FDA-Public Use
  Company Number: US-JNJFOC-20110402546

PATIENT
  Sex: Female

DRUGS (5)
  1. DURAGESIC [Suspect]
     Indication: PAIN
     Route: 062
  2. DURAGESIC [Suspect]
     Route: 062
  3. DURAGESIC [Suspect]
     Route: 062
  4. FENTANYL [Suspect]
     Indication: PAIN
     Route: 048
  5. DURAGESIC [Suspect]
     Route: 062

REACTIONS (7)
  - WITHDRAWAL SYNDROME [None]
  - DRUG INEFFECTIVE [None]
  - PRODUCT PACKAGING ISSUE [None]
  - RESPIRATORY ARREST [None]
  - BEDRIDDEN [None]
  - PAIN [None]
  - DEPENDENCE [None]
